FAERS Safety Report 6566509-X (Version None)
Quarter: 2010Q1

REPORT INFORMATION
  Report Type: 
  Country: None (occurrence: None)
  Receive Date: 20100127
  Receipt Date: 20100113
  Transmission Date: 20100710
  Serious: Yes (Hospitalization, Other)
  Sender: FDA-Public Use
  Company Number: 2010000031

PATIENT
  Age: 67 Year
  Sex: Female

DRUGS (10)
  1. NUVIGIL [Suspect]
     Dosage: 150 MG, ORAL
     Route: 048
     Dates: start: 20090901
  2. FESOTERODINE (FESOTERODINE) (TABLET) [Suspect]
     Dosage: ORAL
     Route: 048
  3. ENALAPRIL MALEATE [Concomitant]
  4. ASPIRIN [Concomitant]
  5. OMEPRAZOLE [Concomitant]
  6. COLACE (DOCUSATE SODIUM) [Concomitant]
  7. FLUMETHASONE (0.1 PERCENT) [Concomitant]
  8. EFFEXOR [Concomitant]
  9. LORAZEPAM [Concomitant]
  10. LEVOTHYROXINE SODIUM [Concomitant]

REACTIONS (15)
  - CHILLS [None]
  - DERMATITIS BULLOUS [None]
  - DRUG ERUPTION [None]
  - FALL [None]
  - GAIT DISTURBANCE [None]
  - ORAL DISORDER [None]
  - PAIN [None]
  - PAIN IN EXTREMITY [None]
  - SKIN LACERATION [None]
  - STAPHYLOCOCCAL BACTERAEMIA [None]
  - STAPHYLOCOCCAL SKIN INFECTION [None]
  - STEVENS-JOHNSON SYNDROME [None]
  - TOXIC EPIDERMAL NECROLYSIS [None]
  - TOXIC SHOCK SYNDROME [None]
  - WOUND [None]
